FAERS Safety Report 24558420 (Version 1)
Quarter: 2024Q4

REPORT INFORMATION
  Report Type: Spontaneous
  Country: GB (occurrence: GB)
  Receive Date: 20241029
  Receipt Date: 20241029
  Transmission Date: 20250115
  Serious: Yes (Life-Threatening, Hospitalization, Other)
  Sender: TEVA
  Company Number: None

PATIENT
  Age: 59 Year
  Sex: Male
  Weight: 98 kg

DRUGS (6)
  1. FENTANYL [Suspect]
     Active Substance: FENTANYL
     Route: 065
  2. ATRACURIUM [Suspect]
     Active Substance: ATRACURIUM
     Route: 065
  3. CEFUROXIME [Suspect]
     Active Substance: CEFUROXIME
     Indication: Adverse drug reaction
     Route: 065
     Dates: start: 20241023, end: 20241023
  4. PROPOFOL [Suspect]
     Active Substance: PROPOFOL
     Route: 065
  5. GENTAMICIN [Suspect]
     Active Substance: GENTAMICIN
     Route: 065
  6. MIDAZOLAM [Suspect]
     Active Substance: MIDAZOLAM
     Route: 065

REACTIONS (1)
  - Hypoxia [Recovered/Resolved]

NARRATIVE: CASE EVENT DATE: 20241023
